FAERS Safety Report 19976736 (Version 6)
Quarter: 2022Q3

REPORT INFORMATION
  Report Type: Report from Study
  Country: US (occurrence: US)
  Receive Date: 20211020
  Receipt Date: 20220718
  Transmission Date: 20221027
  Serious: Yes (Hospitalization, Other)
  Sender: FDA-Public Use
  Company Number: US-TAKEDA-2021TUS064188

PATIENT
  Sex: Female

DRUGS (16)
  1. TEDUGLUTIDE [Suspect]
     Active Substance: TEDUGLUTIDE
     Indication: Short-bowel syndrome
     Dosage: 0.339 MILLILITER, QD
     Route: 058
     Dates: start: 20210630
  2. TEDUGLUTIDE [Suspect]
     Active Substance: TEDUGLUTIDE
     Indication: Short-bowel syndrome
     Dosage: 0.339 MILLILITER, QD
     Route: 058
     Dates: start: 20210630
  3. TEDUGLUTIDE [Suspect]
     Active Substance: TEDUGLUTIDE
     Indication: Short-bowel syndrome
     Dosage: 0.339 MILLILITER, QD
     Route: 058
     Dates: start: 20210630
  4. TEDUGLUTIDE [Suspect]
     Active Substance: TEDUGLUTIDE
     Indication: Short-bowel syndrome
     Dosage: 0.339 MILLILITER, QD
     Route: 058
     Dates: start: 20210630
  5. TEDUGLUTIDE [Suspect]
     Active Substance: TEDUGLUTIDE
     Indication: Post procedural complication
     Dosage: 3.39 MILLIGRAM, QD
     Route: 058
     Dates: start: 20210630
  6. TEDUGLUTIDE [Suspect]
     Active Substance: TEDUGLUTIDE
     Indication: Post procedural complication
     Dosage: 3.39 MILLIGRAM, QD
     Route: 058
     Dates: start: 20210630
  7. TEDUGLUTIDE [Suspect]
     Active Substance: TEDUGLUTIDE
     Indication: Post procedural complication
     Dosage: 3.39 MILLIGRAM, QD
     Route: 058
     Dates: start: 20210630
  8. TEDUGLUTIDE [Suspect]
     Active Substance: TEDUGLUTIDE
     Indication: Post procedural complication
     Dosage: 3.39 MILLIGRAM, QD
     Route: 058
     Dates: start: 20210630
  9. TEDUGLUTIDE [Suspect]
     Active Substance: TEDUGLUTIDE
     Indication: Gastrointestinal disorder
     Dosage: 3.39 MILLIGRAM, QD
     Route: 058
     Dates: start: 202106
  10. TEDUGLUTIDE [Suspect]
     Active Substance: TEDUGLUTIDE
     Indication: Gastrointestinal disorder
     Dosage: 3.39 MILLIGRAM, QD
     Route: 058
     Dates: start: 202106
  11. TEDUGLUTIDE [Suspect]
     Active Substance: TEDUGLUTIDE
     Indication: Gastrointestinal disorder
     Dosage: 3.39 MILLIGRAM, QD
     Route: 058
     Dates: start: 202106
  12. TEDUGLUTIDE [Suspect]
     Active Substance: TEDUGLUTIDE
     Indication: Gastrointestinal disorder
     Dosage: 3.39 MILLIGRAM, QD
     Route: 058
     Dates: start: 202106
  13. TEDUGLUTIDE [Suspect]
     Active Substance: TEDUGLUTIDE
     Dosage: 3.39 MILLIGRAM, QD
     Route: 058
     Dates: start: 20210821
  14. TEDUGLUTIDE [Suspect]
     Active Substance: TEDUGLUTIDE
     Dosage: 3.39 MILLIGRAM, QD
     Route: 058
     Dates: start: 20210821
  15. TEDUGLUTIDE [Suspect]
     Active Substance: TEDUGLUTIDE
     Dosage: 3.39 MILLIGRAM, QD
     Route: 058
     Dates: start: 20210821
  16. TEDUGLUTIDE [Suspect]
     Active Substance: TEDUGLUTIDE
     Dosage: 3.39 MILLIGRAM, QD
     Route: 058
     Dates: start: 20210821

REACTIONS (14)
  - Sepsis [Unknown]
  - Post procedural fistula [Unknown]
  - Alopecia [Unknown]
  - Surgery [Recovering/Resolving]
  - Gastric disorder [Unknown]
  - COVID-19 [Unknown]
  - Myopia [Unknown]
  - Condition aggravated [Unknown]
  - Back pain [Unknown]
  - Stoma site extravasation [Unknown]
  - Product dose omission issue [Unknown]
  - Device issue [Unknown]
  - Fatigue [Unknown]
  - Asthenia [Unknown]
